FAERS Safety Report 8422727-7 (Version None)
Quarter: 2012Q2

REPORT INFORMATION
  Report Type: 
  Country: None (occurrence: None)
  Receive Date: 20120608
  Receipt Date: 20120601
  Transmission Date: 20120825
  Serious: Yes (Other)
  Sender: FDA-Public Use
  Company Number: FR-ROCHE-1076358

PATIENT
  Sex: Female

DRUGS (8)
  1. LUCENTIS [Suspect]
     Indication: PRODUCT USED FOR UNKNOWN INDICATION
     Route: 050
  2. ASPIRIN [Concomitant]
  3. LEVOTHYROXINE SODIUM [Concomitant]
  4. LUCENTIS [Suspect]
     Route: 050
     Dates: start: 20110101
  5. LUCENTIS [Suspect]
     Route: 050
     Dates: start: 20120530
  6. EXOCINE [Concomitant]
  7. ATORVASTATIN [Concomitant]
  8. VITABACT [Concomitant]

REACTIONS (2)
  - BLINDNESS UNILATERAL [None]
  - INFLUENZA LIKE ILLNESS [None]
